FAERS Safety Report 14255500 (Version 1)
Quarter: 2017Q4

REPORT INFORMATION
  Report Type: Report from Study
  Country: US (occurrence: BR)
  Receive Date: 20171206
  Receipt Date: 20171206
  Transmission Date: 20180321
  Serious: Yes (Other)
  Sender: FDA-Public Use
  Company Number: US-SUNOVION-2017SUN004991

PATIENT
  Sex: Male
  Weight: 76 kg

DRUGS (3)
  1. CIPROFIBRATE [Concomitant]
     Active Substance: CIPROFIBRATE
     Dosage: UNK
  2. GLYCOPYRROLATE. [Suspect]
     Active Substance: GLYCOPYRROLATE
     Indication: EMPHYSEMA
     Dosage: 50 ?G, QD
     Route: 055
     Dates: start: 20170808
  3. LOSARTAN. [Concomitant]
     Active Substance: LOSARTAN
     Dosage: UNK

REACTIONS (9)
  - Muscle strain [Recovering/Resolving]
  - Gait inability [Recovering/Resolving]
  - Musculoskeletal pain [Not Recovered/Not Resolved]
  - Hypokinesia [Unknown]
  - Insomnia [Unknown]
  - Fall [Unknown]
  - Limb injury [Unknown]
  - Foot fracture [Recovering/Resolving]
  - Tendon rupture [Unknown]
